FAERS Safety Report 16419787 (Version 4)
Quarter: 2019Q3

REPORT INFORMATION
  Report Type: Report from Study
  Country: US (occurrence: US)
  Receive Date: 20190612
  Receipt Date: 20190717
  Transmission Date: 20191004
  Serious: Yes (Hospitalization)
  Sender: FDA-Public Use
  Company Number: US-TAIHO ONCOLOGY  INC-EU-2019-01932

PATIENT
  Age: 77 Year
  Sex: Male
  Weight: 84.44 kg

DRUGS (26)
  1. LEVOTHYROXIN [Concomitant]
     Active Substance: LEVOTHYROXINE
     Dates: start: 20190422
  2. OXYBUTYNIN. [Concomitant]
     Active Substance: OXYBUTYNIN CHLORIDE
     Dates: start: 20190422
  3. PRAVASTATIN. [Concomitant]
     Active Substance: PRAVASTATIN
     Dates: start: 20190422
  4. PROCHLORPERAZINE. [Concomitant]
     Active Substance: PROCHLORPERAZINE
     Dates: start: 20190422
  5. NITROFURANTOIN. [Concomitant]
     Active Substance: NITROFURANTOIN
  6. LINEZOLID. [Concomitant]
     Active Substance: LINEZOLID
  7. FUROSEMIDE. [Concomitant]
     Active Substance: FUROSEMIDE
  8. SPIRONOLACTONE. [Concomitant]
     Active Substance: SPIRONOLACTONE
  9. SPIRIVA [Concomitant]
     Active Substance: TIOTROPIUM BROMIDE MONOHYDRATE
     Dosage: NI
  10. LONSURF [Suspect]
     Active Substance: TIPIRACIL HYDROCHLORIDE\TRIFLURIDINE
     Indication: COLON CANCER
  11. FOLIC ACID. [Concomitant]
     Active Substance: FOLIC ACID
     Dates: start: 20190422
  12. PILOCARPINE. [Concomitant]
     Active Substance: PILOCARPINE
  13. FINASTERIDE. [Concomitant]
     Active Substance: FINASTERIDE
     Dates: start: 20190422
  14. METHENAM HIP [Concomitant]
     Dates: start: 20190422
  15. OMEPRAZOLE. [Concomitant]
     Active Substance: OMEPRAZOLE
     Dates: start: 20190422
  16. TAMSULOSIN [Concomitant]
     Active Substance: TAMSULOSIN
     Dates: start: 20190422
  17. FISH OIL [Concomitant]
     Active Substance: FISH OIL
     Dates: start: 20190422
  18. ISOSORB MONO [Concomitant]
     Active Substance: ISOSORBIDE MONONITRATE
     Dosage: ER
     Dates: start: 20190422
  19. NORCO [Concomitant]
     Active Substance: ACETAMINOPHEN\HYDROCODONE BITARTRATE
     Dosage: 7.5-325 MG
     Dates: start: 20190422
  20. CHLORPROMAZINE. [Concomitant]
     Active Substance: CHLORPROMAZINE
  21. LONSURF [Suspect]
     Active Substance: TIPIRACIL HYDROCHLORIDE\TRIFLURIDINE
     Indication: COLON CANCER
     Dosage: CYCLE 1 COMPLETED ON 02JUNE2019?CYCLE 2
     Route: 048
     Dates: start: 20190506, end: 2019
  22. MECLIZINE [Concomitant]
     Active Substance: MECLIZINE HYDROCHLORIDE
     Indication: DIZZINESS
     Dates: start: 20190422
  23. ISOSORB MONO [Concomitant]
     Active Substance: ISOSORBIDE MONONITRATE
  24. PANTOPRAZOLE [Concomitant]
     Active Substance: PANTOPRAZOLE
  25. CALCIUM [Concomitant]
     Active Substance: CALCIUM
     Dosage: NI
  26. OXYCONTIN [Concomitant]
     Active Substance: OXYCODONE HYDROCHLORIDE

REACTIONS (8)
  - Dyspnoea [Unknown]
  - Myalgia [Unknown]
  - Abdominal distension [Not Recovered/Not Resolved]
  - Ascites [Not Recovered/Not Resolved]
  - Inappropriate schedule of product administration [Unknown]
  - Hypoaesthesia [Recovered/Resolved]
  - Malaise [Unknown]
  - Platelet count decreased [Unknown]

NARRATIVE: CASE EVENT DATE: 2019
